FAERS Safety Report 17532035 (Version 2)
Quarter: 2020Q1

REPORT INFORMATION
  Report Type: Spontaneous
  Country: AT (occurrence: AT)
  Receive Date: 20200312
  Receipt Date: 20200323
  Transmission Date: 20200409
  Serious: Yes (Other)
  Sender: FDA-Public Use
  Company Number: AT-PFIZER INC-2020103392

PATIENT
  Age: 67 Year
  Sex: Female

DRUGS (1)
  1. METHOTREXATE SODIUM. [Suspect]
     Active Substance: METHOTREXATE SODIUM
     Indication: OCULAR LYMPHOMA
     Dosage: 0.4 MG, MONTHLY (INTRAVITREAL, INJECTIONS 0.4MG MTX IN 0.1 ML) (FOUR INJECTIONS)

REACTIONS (1)
  - Retinal vascular disorder [Unknown]
